FAERS Safety Report 17637137 (Version 2)
Quarter: 2020Q3

REPORT INFORMATION
  Report Type: Spontaneous
  Country: TR (occurrence: TR)
  Receive Date: 20200407
  Receipt Date: 20200707
  Transmission Date: 20201102
  Serious: No
  Sender: FDA-Public Use
  Company Number: TR-TOLMAR, INC.-20TR020882

PATIENT
  Age: 77 Year
  Sex: Male

DRUGS (1)
  1. ELIGARD [Suspect]
     Active Substance: LEUPROLIDE ACETATE
     Indication: PROSTATE CANCER
     Dosage: 45 MG, Q 6 MONTH
     Route: 058

REACTIONS (4)
  - Underdose [None]
  - Needle issue [None]
  - Device leakage [None]
  - Incorrect dose administered [None]

NARRATIVE: CASE EVENT DATE: 20200326
